FAERS Safety Report 13898632 (Version 3)
Quarter: 2017Q3

REPORT INFORMATION
  Report Type: Spontaneous
  Country: MX (occurrence: MX)
  Receive Date: 20170823
  Receipt Date: 20170913
  Transmission Date: 20171127
  Serious: Yes (Death, Hospitalization)
  Sender: FDA-Public Use
  Company Number: PHHY2017MX123303

PATIENT
  Age: 72 Year
  Sex: Female

DRUGS (2)
  1. METFORMIN [Suspect]
     Active Substance: METFORMIN HYDROCHLORIDE
     Indication: TYPE 2 DIABETES MELLITUS
     Dosage: 850 MG, Q12H
     Route: 065
  2. GLIBENCLAMIDE [Concomitant]
     Active Substance: GLYBURIDE
     Indication: TYPE 2 DIABETES MELLITUS
     Dosage: 5 MG, Q12H
     Route: 065

REACTIONS (14)
  - Pyrexia [Fatal]
  - Confusional state [Fatal]
  - Abdominal pain [Fatal]
  - Tachycardia [Fatal]
  - Metabolic acidosis [Fatal]
  - Lactic acidosis [Fatal]
  - Dehydration [Fatal]
  - Oliguria [Fatal]
  - Septic shock [Fatal]
  - Diarrhoea [Fatal]
  - General physical health deterioration [Fatal]
  - Somnolence [Fatal]
  - Tachypnoea [Fatal]
  - Multiple organ dysfunction syndrome [Fatal]
